FAERS Safety Report 8429241-3 (Version None)
Quarter: 2012Q2

REPORT INFORMATION
  Report Type: 
  Country: None (occurrence: None)
  Receive Date: 20120612
  Receipt Date: 20120605
  Transmission Date: 20120825
  Serious: Yes (Other)
  Sender: FDA-Public Use
  Company Number: PHEH2012US010638

PATIENT
  Sex: Female
  Weight: 64.3 kg

DRUGS (2)
  1. CLOZARIL [Suspect]
     Dosage: 50 MG, QHS
     Dates: start: 20120525
  2. CLOZARIL [Suspect]
     Indication: PSYCHOTIC DISORDER
     Dosage: UNK UKN, UNK

REACTIONS (3)
  - NEUTROPHIL COUNT DECREASED [None]
  - PSYCHOTIC DISORDER [None]
  - WHITE BLOOD CELL COUNT DECREASED [None]
